FAERS Safety Report 8350065-X (Version None)
Quarter: 2012Q2

REPORT INFORMATION
  Report Type: 
  Country: None (occurrence: None)
  Receive Date: 20120510
  Receipt Date: 20120508
  Transmission Date: 20120825
  Serious: Yes (Other)
  Sender: FDA-Public Use
  Company Number: US-PFIZER INC-2012043412

PATIENT
  Sex: Male

DRUGS (3)
  1. PERCOCET [Concomitant]
     Dosage: UNK
  2. ULTRAM [Concomitant]
     Dosage: UNK
  3. LYRICA [Suspect]
     Dosage: 200 MG, 2X/DAY

REACTIONS (2)
  - SPEECH DISORDER [None]
  - DRUG EFFECT DECREASED [None]
